FAERS Safety Report 24623467 (Version 2)
Quarter: 2024Q4

REPORT INFORMATION
  Report Type: Report from Study
  Country: US (occurrence: US)
  Receive Date: 20241115
  Receipt Date: 20241210
  Transmission Date: 20250114
  Serious: Yes (Hospitalization)
  Sender: ROCHE
  Company Number: US-ROCHE-10000130473

PATIENT
  Age: 63 Year
  Sex: Male

DRUGS (14)
  1. RITUXAN [Suspect]
     Active Substance: RITUXIMAB
     Indication: Multiple sclerosis
     Dosage: DOT: 31-OCT-2018
     Route: 065
     Dates: start: 20181017
  2. OCREVUS [Suspect]
     Active Substance: OCRELIZUMAB
     Indication: Multiple sclerosis
     Route: 042
  3. OCREVUS ZUNOVO [Suspect]
     Active Substance: HYALURONIDASE-OCSQ\OCRELIZUMAB
     Indication: Multiple sclerosis
     Route: 058
  4. BACLOFEN [Concomitant]
     Active Substance: BACLOFEN
  5. DALFAMPRIDINE [Concomitant]
     Active Substance: DALFAMPRIDINE
  6. TIZANIDINE [Concomitant]
     Active Substance: TIZANIDINE
  7. GABAPENTIN [Concomitant]
     Active Substance: GABAPENTIN
  8. FLONASE [Concomitant]
     Active Substance: FLUTICASONE PROPIONATE
  9. NORVASC [Concomitant]
     Active Substance: AMLODIPINE BESYLATE
  10. VOLTAREN [Concomitant]
     Active Substance: DICLOFENAC SODIUM
  11. DALFAMPRIDINE [Concomitant]
     Active Substance: DALFAMPRIDINE
  12. ALLOPURINOL [Concomitant]
     Active Substance: ALLOPURINOL
  13. TYLENOL [Concomitant]
     Active Substance: ACETAMINOPHEN
  14. DECADRON [Concomitant]
     Active Substance: DEXAMETHASONE

REACTIONS (2)
  - Off label use [Unknown]
  - COVID-19 pneumonia [Unknown]
